FAERS Safety Report 13153013 (Version 1)
Quarter: 2017Q1

REPORT INFORMATION
  Report Type: Spontaneous
  Country: CA (occurrence: CA)
  Receive Date: 20170126
  Receipt Date: 20170126
  Transmission Date: 20170428
  Serious: Yes (Hospitalization)
  Sender: FDA-Public Use
  Company Number: CA-CONCORDIA PHARMACEUTICALS INC.-GSH201701-000533

PATIENT
  Age: 74 Year
  Sex: Female

DRUGS (4)
  1. IMURAN [Concomitant]
     Active Substance: AZATHIOPRINE
     Dates: end: 20161015
  2. PLAVIX [Suspect]
     Active Substance: CLOPIDOGREL BISULFATE
     Indication: TRANSIENT ISCHAEMIC ATTACK
     Route: 065
  3. PLAQUENIL [Suspect]
     Active Substance: HYDROXYCHLOROQUINE SULFATE
     Indication: OSTEOARTHRITIS
     Route: 048
     Dates: start: 20161208, end: 20161231
  4. PREDNISONE. [Concomitant]
     Active Substance: PREDNISONE
     Dates: end: 20160902

REACTIONS (4)
  - Skin exfoliation [Unknown]
  - Rash generalised [Recovering/Resolving]
  - Pruritus [Unknown]
  - Lethargy [Unknown]

NARRATIVE: CASE EVENT DATE: 20161231
